FAERS Safety Report 4585919-3 (Version None)
Quarter: 2005Q1

REPORT INFORMATION
  Report Type: 
  Country: None (occurrence: None)
  Receive Date: 20050214
  Receipt Date: 20050201
  Transmission Date: 20050727
  Serious: Yes (Other)
  Sender: FDA-Public Use
  Company Number: 2005023049

PATIENT
  Sex: Male

DRUGS (6)
  1. TAHOR (ATORVASTATIN) [Suspect]
     Indication: ILL-DEFINED DISORDER
  2. CEFUROXIME [Suspect]
     Indication: BRONCHIAL INFECTION
     Dosage: 250 MG
  3. SIMVASTATIN [Suspect]
     Indication: ILL-DEFINED DISORDER
  4. CLOPIDOGREL BISULFATE [Concomitant]
  5. ACETYLSALICYATE LYSINE (ACETYLSALICYLATE LYSINE) [Concomitant]
  6. RAMIPRIL [Concomitant]

REACTIONS (7)
  - BRONCHIAL INFECTION [None]
  - COMPARTMENT SYNDROME [None]
  - DRUG INTERACTION [None]
  - HEPATITIS [None]
  - MUSCLE DISORDER [None]
  - MYALGIA [None]
  - TRISMUS [None]
